FAERS Safety Report 8214496-0 (Version None)
Quarter: 2012Q1

REPORT INFORMATION
  Report Type: 
  Country: None (occurrence: None)
  Receive Date: 20120316
  Receipt Date: 20120316
  Transmission Date: 20120608
  Serious: Yes (Life-Threatening)
  Sender: FDA-Public Use
  Company Number: None

PATIENT
  Age: 65 Year
  Sex: Male
  Weight: 99 kg

DRUGS (10)
  1. FLECAINIDE ACETATE [Concomitant]
     Route: 048
  2. PREDNISONE TAB [Concomitant]
     Route: 048
  3. OMEPRAZOLE [Concomitant]
     Route: 048
  4. VITAMIN D [Concomitant]
     Route: 048
  5. LEVOTHYROXINE SODIUM [Concomitant]
     Route: 048
  6. METFORMIN HCL [Concomitant]
     Route: 048
  7. CARTIA XT [Concomitant]
     Route: 048
  8. METFORMIN HCL [Concomitant]
     Route: 048
  9. DABIGATRAN [Suspect]
     Indication: ATRIAL FIBRILLATION
     Dosage: 150MG
     Route: 048
  10. GLYBURIDE [Concomitant]
     Route: 048

REACTIONS (11)
  - RENAL CANCER [None]
  - LACTIC ACIDOSIS [None]
  - HYPOTENSION [None]
  - TRANSFUSION-RELATED ACUTE LUNG INJURY [None]
  - HYPOXIA [None]
  - OLIGURIA [None]
  - COAGULOPATHY [None]
  - THROMBOCYTOPENIA [None]
  - PROCEDURAL HAEMORRHAGE [None]
  - HYPOTHERMIA [None]
  - RESPIRATORY FAILURE [None]
